FAERS Safety Report 7908861 (Version 6)
Quarter: 2013Q4

REPORT INFORMATION
  Report Type: Report from Study
  Country: US (occurrence: US)
  Receive Date: 20110421
  Receipt Date: 20131130
  Transmission Date: 20140711
  Serious: Yes (Hospitalization, Other)
  Sender: FDA-Public Use
  Company Number: PHHY2011US32561

PATIENT
  Age: 27 Year
  Sex: Female

DRUGS (1)
  1. GILENYA [Suspect]
     Indication: RELAPSING-REMITTING MULTIPLE SCLEROSIS
     Dosage: 0.5 MG, QD
     Route: 048
     Dates: start: 20110325, end: 20110414

REACTIONS (6)
  - Central nervous system lesion [Recovering/Resolving]
  - Gait disturbance [Unknown]
  - Cerebellar syndrome [Unknown]
  - Bradyphrenia [Unknown]
  - Convulsion [Recovering/Resolving]
  - Cognitive disorder [Unknown]
